FAERS Safety Report 6149626-8 (Version None)
Quarter: 2009Q2

REPORT INFORMATION
  Report Type: 
  Country: None (occurrence: None)
  Receive Date: 20090407
  Receipt Date: 20090407
  Transmission Date: 20091009
  Serious: No
  Sender: FDA-Public Use
  Company Number: None

PATIENT
  Age: 52 Year
  Sex: Male

DRUGS (1)
  1. METHADONE [Suspect]
     Dosage: 2.5 MG BID PO
     Route: 048
     Dates: start: 20090205, end: 20090216

REACTIONS (2)
  - CONSTIPATION [None]
  - HAEMORRHOIDS [None]
